FAERS Safety Report 9998904 (Version 1)
Quarter: 2014Q1

REPORT INFORMATION
  Report Type: Spontaneous
  Country: US (occurrence: US)
  Receive Date: 20140312
  Receipt Date: 20140312
  Transmission Date: 20141002
  Serious: Yes (Other)
  Sender: FDA-Public Use
  Company Number: US-BRISTOL-MYERS SQUIBB COMPANY-20346763

PATIENT
  Age: 69 Year
  Sex: Male
  Weight: 88.89 kg

DRUGS (8)
  1. ELIQUIS [Suspect]
  2. METOPROLOL [Concomitant]
     Indication: BLOOD PRESSURE
  3. MELOXICAM [Concomitant]
     Indication: ARTHRITIS
  4. MULTIVITAMIN [Concomitant]
     Dosage: 50+ DAILY
  5. VITAMIN E [Concomitant]
  6. IRON [Concomitant]
  7. OMEPRAZOLE [Concomitant]
  8. AMBIEN [Concomitant]

REACTIONS (1)
  - Venous occlusion [Unknown]
